FAERS Safety Report 11183659 (Version 1)
Quarter: 2015Q2

REPORT INFORMATION
  Report Type: Spontaneous
  Country: US (occurrence: None)
  Receive Date: 20150610
  Receipt Date: 20150610
  Transmission Date: 20150821
  Serious: Yes (Life-Threatening, Hospitalization)
  Sender: FDA-Public Use
  Company Number: None

PATIENT
  Age: 47 Year
  Sex: Female
  Weight: 63.6 kg

DRUGS (4)
  1. FENTANYL. [Concomitant]
     Active Substance: FENTANYL
  2. PDI SUPER SANI-CLOTH 0.25%, 0.25%, 55% PROFESSIONAL DISPOSABLES INT., INC [Suspect]
     Active Substance: ALCOHOL
     Indication: ANTIBIOTIC PROPHYLAXIS
  3. VERSED [Concomitant]
     Active Substance: MIDAZOLAM HYDROCHLORIDE
  4. LIDOCAINE. [Concomitant]
     Active Substance: LIDOCAINE

REACTIONS (3)
  - Laryngospasm [None]
  - Anxiety [None]
  - Urticaria [None]

NARRATIVE: CASE EVENT DATE: 20150526
